FAERS Safety Report 9137599 (Version 1)
Quarter: 2013Q1

REPORT INFORMATION
  Report Type: Spontaneous
  Country: GB (occurrence: GB)
  Receive Date: 20130304
  Receipt Date: 20130304
  Transmission Date: 20140127
  Serious: Yes (Hospitalization, Other)
  Sender: FDA-Public Use
  Company Number: PHFR2010GB00794

PATIENT
  Age: 40 Year
  Sex: Male

DRUGS (3)
  1. CLOZARIL [Suspect]
     Indication: SCHIZOPHRENIA
     Dosage: 250 MG, UNK
     Route: 048
     Dates: start: 20100421, end: 20100527
  2. ZOPICLONE [Concomitant]
     Indication: INSOMNIA
     Dosage: 7.5 MG, UNK
     Route: 048
     Dates: start: 2008
  3. DIAZEPAM [Concomitant]
     Indication: ANXIETY
     Dosage: 15 MG, UNK
     Route: 048
     Dates: start: 2008

REACTIONS (7)
  - Mental disorder [Unknown]
  - Eosinophilia [Recovered/Resolved]
  - Poor dental condition [Unknown]
  - Blood count abnormal [Unknown]
  - Dizziness [Unknown]
  - Vomiting [Unknown]
  - White blood cell count increased [Unknown]
